FAERS Safety Report 14901719 (Version 2)
Quarter: 2018Q2

REPORT INFORMATION
  Report Type: Report from Study
  Country: CA (occurrence: CA)
  Receive Date: 20180516
  Receipt Date: 20180517
  Transmission Date: 20180711
  Serious: Yes (Other)
  Sender: FDA-Public Use
  Company Number: CA-GLAXOSMITHKLINE-CA2017GSK157290

PATIENT
  Age: 45 Year
  Sex: Female

DRUGS (4)
  1. MEPOLIZUMAB [Suspect]
     Active Substance: MEPOLIZUMAB
     Dosage: 100 MG, Z
     Route: 042
  2. MEPOLIZUMAB [Suspect]
     Active Substance: MEPOLIZUMAB
     Dosage: 100 MG, Z
     Route: 042
  3. MEPOLIZUMAB [Suspect]
     Active Substance: MEPOLIZUMAB
     Indication: ASTHMA
     Dosage: 100 MG, Z
     Route: 042
     Dates: start: 20170911
  4. MEPOLIZUMAB [Suspect]
     Active Substance: MEPOLIZUMAB
     Dosage: 100 MG, Z
     Route: 042

REACTIONS (15)
  - Breast pain [Recovering/Resolving]
  - Rash erythematous [Unknown]
  - Pruritus [Unknown]
  - Sputum discoloured [Unknown]
  - Nasal congestion [Unknown]
  - Vomiting [Unknown]
  - Pulmonary congestion [Unknown]
  - Malaise [Unknown]
  - Influenza like illness [Unknown]
  - Lower respiratory tract congestion [Unknown]
  - Hypersensitivity [Unknown]
  - Influenza [Unknown]
  - Increased bronchial secretion [Unknown]
  - Nasopharyngitis [Unknown]
  - Productive cough [Unknown]

NARRATIVE: CASE EVENT DATE: 20171006
